FAERS Safety Report 13706452 (Version 2)
Quarter: 2017Q3

REPORT INFORMATION
  Report Type: Spontaneous
  Country: FR (occurrence: FR)
  Receive Date: 20170630
  Receipt Date: 20170707
  Transmission Date: 20171127
  Serious: Yes (Hospitalization)
  Sender: FDA-Public Use
  Company Number: FR-VIFOR (INTERNATIONAL) INC.-VIT-2017-07009

PATIENT
  Age: 64 Year
  Sex: Female

DRUGS (16)
  1. INEXIUM [Concomitant]
     Active Substance: ESOMEPRAZOLE
     Indication: GASTRODUODENAL ULCER
     Route: 048
  2. DEROXAT [Concomitant]
     Active Substance: PAROXETINE HYDROCHLORIDE
     Indication: PRODUCT USED FOR UNKNOWN INDICATION
     Route: 048
  3. RENVELA [Concomitant]
     Active Substance: SEVELAMER CARBONATE
     Dosage: 1 SACHET
     Route: 048
     Dates: start: 20170406
  4. LASILIX [Concomitant]
     Active Substance: FUROSEMIDE
     Indication: CHRONIC KIDNEY DISEASE
     Route: 048
  5. IMODIUM [Concomitant]
     Active Substance: LOPERAMIDE HYDROCHLORIDE
     Indication: DIARRHOEA
     Route: 048
  6. TAHOR [Concomitant]
     Active Substance: ATORVASTATIN CALCIUM
     Indication: HYPERCHOLESTEROLAEMIA
     Route: 048
  7. SPECIAFOLDINE [Concomitant]
     Active Substance: FOLIC ACID
     Indication: PRODUCT USED FOR UNKNOWN INDICATION
     Route: 048
  8. VELPHORO [Suspect]
     Active Substance: FERRIC OXYHYDROXIDE
     Indication: PHOSPHORUS METABOLISM DISORDER
     Dosage: 2 TABLETS
     Route: 048
     Dates: start: 20170406
  9. DAFALGAN CODEINE [Suspect]
     Active Substance: ACETAMINOPHEN\CODEINE PHOSPHATE
     Indication: PAIN
  10. LEXOMIL [Concomitant]
     Active Substance: BROMAZEPAM
     Indication: PRODUCT USED FOR UNKNOWN INDICATION
     Route: 048
  11. MIMPARA [Concomitant]
     Active Substance: CINACALCET HYDROCHLORIDE
     Indication: HYPERPARATHYROIDISM SECONDARY
     Route: 048
  12. ROCALTROL [Concomitant]
     Active Substance: CALCITRIOL
     Indication: PHOSPHORUS METABOLISM DISORDER
     Route: 048
  13. IXPRIM [Suspect]
     Active Substance: ACETAMINOPHEN\TRAMADOL HYDROCHLORIDE
     Indication: PAIN
  14. SPASFON (PHLOROGLUCINOL, TRIMETHYLPHLOROGLUCINOL) [Concomitant]
     Active Substance: PHLOROGLUCINOL\1,3,5-TRIMETHOXYBENZENE
     Indication: ABDOMINAL PAIN
     Route: 048
  15. ULTRA-LEVURE [Concomitant]
     Active Substance: SACCHAROMYCES CEREVISIAE
     Indication: DIARRHOEA
     Route: 048
  16. RENVELA [Concomitant]
     Active Substance: SEVELAMER CARBONATE
     Indication: PHOSPHORUS METABOLISM DISORDER
     Dosage: 2 SACHETS
     Route: 048
     Dates: start: 201701

REACTIONS (9)
  - Posture abnormal [Unknown]
  - Coma scale abnormal [Unknown]
  - Loss of consciousness [Unknown]
  - Seizure [Recovered/Resolved]
  - Malaise [Recovered/Resolved]
  - Discomfort [Unknown]
  - Agitation [Unknown]
  - Sinusitis [Unknown]
  - Generalised tonic-clonic seizure [Recovered/Resolved]

NARRATIVE: CASE EVENT DATE: 2017
